FAERS Safety Report 12857233 (Version 1)
Quarter: 2016Q4

REPORT INFORMATION
  Report Type: Spontaneous
  Country: US (occurrence: US)
  Receive Date: 20161018
  Receipt Date: 20161018
  Transmission Date: 20170207
  Serious: Yes (Other)
  Sender: FDA-Public Use
  Company Number: US-PFIZER INC-2016483032

PATIENT
  Age: 77 Year
  Sex: Male
  Weight: 56.7 kg

DRUGS (1)
  1. VIAGRA [Suspect]
     Active Substance: SILDENAFIL CITRATE
     Indication: ERECTILE DYSFUNCTION
     Dosage: 100 MG, ONCE OR TWICE A MONTH
     Dates: start: 2001, end: 201512

REACTIONS (2)
  - Aortic valve calcification [Recovering/Resolving]
  - Aortic valve stenosis [Recovering/Resolving]
